FAERS Safety Report 7915873-5 (Version None)
Quarter: 2011Q4

REPORT INFORMATION
  Report Type: 
  Country: None (occurrence: None)
  Receive Date: 20111115
  Receipt Date: 20111108
  Transmission Date: 20120403
  Serious: Yes (Hospitalization, Other)
  Sender: FDA-Public Use
  Company Number: US-US-EMD SERONO, INC.-7094876

PATIENT
  Sex: Female

DRUGS (1)
  1. REBIF [Suspect]
     Indication: MULTIPLE SCLEROSIS
     Route: 058
     Dates: start: 20011120

REACTIONS (6)
  - GASTROENTERITIS VIRAL [None]
  - GRIP STRENGTH DECREASED [None]
  - DEHYDRATION [None]
  - ASTHENIA [None]
  - LOCALISED INFECTION [None]
  - CARDIOVASCULAR DISORDER [None]
